FAERS Safety Report 5660151-0 (Version None)
Quarter: 2008Q1

REPORT INFORMATION
  Report Type: 
  Country: None (occurrence: None)
  Receive Date: 20080306
  Receipt Date: 20080226
  Transmission Date: 20080703
  Serious: Yes (Hospitalization)
  Sender: FDA-Public Use
  Company Number: 2008BI005260

PATIENT
  Age: 50 Year
  Sex: Female
  Weight: 71.2147 kg

DRUGS (1)
  1. TYSABRI [Suspect]
     Indication: MULTIPLE SCLEROSIS
     Dosage: 300 MG;QM;IV
     Route: 042
     Dates: start: 20070926, end: 20080222

REACTIONS (4)
  - DEHYDRATION [None]
  - HEADACHE [None]
  - NAUSEA [None]
  - VOMITING [None]
